FAERS Safety Report 6113911-6 (Version None)
Quarter: 2009Q1

REPORT INFORMATION
  Report Type: 
  Country: None (occurrence: None)
  Receive Date: 20090312
  Receipt Date: 20080819
  Transmission Date: 20090719
  Serious: No
  Sender: FDA-Public Use
  Company Number: US-ABBOTT-08P-163-0471506-00

PATIENT
  Sex: Female
  Weight: 62.198 kg

DRUGS (4)
  1. LUPRON DEPOT [Suspect]
     Indication: ARTIFICIAL MENOPAUSE
     Route: 050
     Dates: start: 20080722
  2. ANASTROZOLE [Suspect]
     Indication: PROPHYLAXIS
     Dates: start: 20080729
  3. ANASTROZOLE [Suspect]
     Indication: BREAST CANCER
  4. OXYCET [Concomitant]
     Indication: PAIN
     Route: 048
     Dates: start: 20080701

REACTIONS (4)
  - ARTHRALGIA [None]
  - HYPOMENORRHOEA [None]
  - JOINT SWELLING [None]
  - OEDEMA PERIPHERAL [None]
